FAERS Safety Report 24871351 (Version 1)
Quarter: 2025Q1

REPORT INFORMATION
  Report Type: Spontaneous
  Country: US (occurrence: US)
  Receive Date: 20250122
  Receipt Date: 20250122
  Transmission Date: 20250409
  Serious: Yes (Other)
  Sender: HETERO
  Company Number: US-AMAROX PHARMA-HET2025US00196

PATIENT
  Age: 73 Year
  Sex: Female

DRUGS (3)
  1. DULOXETINE [Suspect]
     Active Substance: DULOXETINE
     Indication: Anxiety
     Route: 065
  2. DULOXETINE [Suspect]
     Active Substance: DULOXETINE
     Indication: Depression
     Route: 065
  3. DULOXETINE [Suspect]
     Active Substance: DULOXETINE
     Route: 065

REACTIONS (6)
  - Atrial fibrillation [Unknown]
  - Vasoconstriction [Recovered/Resolved]
  - Supraventricular tachycardia [Unknown]
  - Cognitive disorder [Unknown]
  - Cyanosis [Recovered/Resolved]
  - Anxiety [Recovered/Resolved]
